FAERS Safety Report 23579801 (Version 1)
Quarter: 2024Q1

REPORT INFORMATION
  Report Type: Spontaneous
  Country: FR (occurrence: FR)
  Receive Date: 20240229
  Receipt Date: 20240229
  Transmission Date: 20240409
  Serious: Yes (Hospitalization)
  Sender: FDA-Public Use
  Company Number: None

PATIENT
  Age: 76 Year
  Sex: Male
  Weight: 71 kg

DRUGS (3)
  1. CARBOPLATIN [Suspect]
     Active Substance: CARBOPLATIN
     Indication: Lung adenocarcinoma
     Dosage: 600.000MG
     Route: 042
     Dates: start: 20231129, end: 20231129
  2. KEYTRUDA [Suspect]
     Active Substance: PEMBROLIZUMAB
     Indication: Lung adenocarcinoma
     Dosage: 200.000MG
     Route: 042
     Dates: start: 20231129, end: 20231129
  3. PEMETREXED [Suspect]
     Active Substance: PEMETREXED
     Indication: Lung adenocarcinoma
     Dosage: 912.500MG
     Route: 042
     Dates: start: 20231129, end: 20231129

REACTIONS (5)
  - Febrile neutropenia [Recovering/Resolving]
  - Oesophagitis [Recovering/Resolving]
  - Enteritis [Recovering/Resolving]
  - Gastritis [Recovering/Resolving]
  - Pancytopenia [Recovering/Resolving]

NARRATIVE: CASE EVENT DATE: 20231205
